FAERS Safety Report 23830871 (Version 1)
Quarter: 2024Q2

REPORT INFORMATION
  Report Type: Spontaneous
  Country: DE (occurrence: DE)
  Receive Date: 20240508
  Receipt Date: 20240508
  Transmission Date: 20240716
  Serious: Yes (Other)
  Sender: FDA-Public Use
  Company Number: None

PATIENT
  Age: 23 Year
  Sex: Female

DRUGS (7)
  1. DOXYCYCLINE HYCLATE [Suspect]
     Active Substance: DOXYCYCLINE HYCLATE
     Dosage: UNK
     Route: 048
  2. BUTYLSCOPOLAMINE BROMIDE [Suspect]
     Active Substance: BUTYLSCOPOLAMINE BROMIDE
     Dosage: 20
     Route: 048
  3. AMBROXOL [Suspect]
     Active Substance: AMBROXOL
     Dosage: UNK
     Route: 048
  4. DICLOFENAC [Suspect]
     Active Substance: DICLOFENAC
     Dosage: 18
     Route: 048
  5. MCP [Suspect]
     Active Substance: METOCLOPRAMIDE HYDROCHLORIDE
     Dosage: 20
     Route: 048
  6. ACETAMINOPHEN [Suspect]
     Active Substance: ACETAMINOPHEN
     Dosage: UNK
     Route: 048
  7. VOLTAREN [Suspect]
     Active Substance: DICLOFENAC SODIUM
     Dosage: 20
     Route: 048

REACTIONS (4)
  - Suicide attempt [Unknown]
  - Drug abuse [Unknown]
  - Overdose [Unknown]
  - Fatigue [Unknown]
